FAERS Safety Report 18476884 (Version 2)
Quarter: 2023Q1

REPORT INFORMATION
  Report Type: Report from Study
  Country: US (occurrence: US)
  Receive Date: 20201107
  Receipt Date: 20230327
  Transmission Date: 20230418
  Serious: Yes (Other)
  Sender: FDA-Public Use
  Company Number: US-TAKEDA-2020TUS048603

PATIENT
  Sex: Female
  Weight: 72 kg

DRUGS (1)
  1. DEXLANSOPRAZOLE [Suspect]
     Active Substance: DEXLANSOPRAZOLE
     Indication: Gastric disorder
     Dosage: 60 MILLIGRAM, QD
     Route: 065

REACTIONS (8)
  - Neuropathy peripheral [Unknown]
  - Malaise [Unknown]
  - Product use issue [Unknown]
  - Illness [Unknown]
  - Muscular dystrophy [Unknown]
  - Burning sensation [Unknown]
  - Foot deformity [Unknown]
  - Decreased appetite [Unknown]
